FAERS Safety Report 14572445 (Version 1)
Quarter: 2018Q1

REPORT INFORMATION
  Report Type: Report from Study
  Country: CA (occurrence: CA)
  Receive Date: 20180226
  Receipt Date: 20180226
  Transmission Date: 20180509
  Serious: Yes (Other)
  Sender: FDA-Public Use
  Company Number: CA-JNJFOC-20180132623

PATIENT
  Sex: Female

DRUGS (1)
  1. DARZALEX [Suspect]
     Active Substance: DARATUMUMAB
     Indication: PLASMA CELL MYELOMA
     Dosage: STRENGTH = 100 MG
     Route: 042

REACTIONS (5)
  - Haemoglobin decreased [Recovered/Resolved]
  - Nasopharyngitis [Unknown]
  - Diarrhoea [Recovering/Resolving]
  - Asthenia [Unknown]
  - Fatigue [Recovering/Resolving]
